FAERS Safety Report 17662533 (Version 2)
Quarter: 2020Q2

REPORT INFORMATION
  Report Type: Spontaneous
  Country: JP (occurrence: JP)
  Receive Date: 20200413
  Receipt Date: 20200423
  Transmission Date: 20200713
  Serious: Yes (Other)
  Sender: FDA-Public Use
  Company Number: JP-PFIZER INC-2020149175

PATIENT
  Age: 48 Year
  Sex: Male

DRUGS (4)
  1. CISPLATIN. [Concomitant]
     Active Substance: CISPLATIN
     Indication: GALLBLADDER CANCER METASTATIC
     Dosage: 25 MG/M2, EVERY 3 WEEKS (ON DAYS 1 AND 8, REPEATED AT A 21-DAY INTERVAL)
  2. TS-1 [Concomitant]
     Active Substance: GIMERACIL\OTERACIL\TEGAFUR
     Indication: GALLBLADDER CANCER METASTATIC
     Dosage: UNK, CYCLIC (GEMCITABINE AND S-1 COMBINATION CHEMOTHERAPY)
  3. GEMCITABINE HYDROCHLORIDE. [Suspect]
     Active Substance: GEMCITABINE HYDROCHLORIDE
     Indication: GALLBLADDER CANCER METASTATIC
     Dosage: 1000 MG/M2, EVERY 3 WEEKS  (ON DAYS 1 AND 8, REPEATED AT A 21-DAY INTERVAL)
  4. GEMCITABINE HYDROCHLORIDE. [Suspect]
     Active Substance: GEMCITABINE HYDROCHLORIDE
     Dosage: UNK, CYCLIC (GEMCITABINE AND S-1 COMBINATION CHEMOTHERAPY)

REACTIONS (2)
  - Granulocyte-colony stimulating factor level increased [Unknown]
  - Eosinophilia [Unknown]
